FAERS Safety Report 9349316 (Version 9)
Quarter: 2014Q1

REPORT INFORMATION
  Report Type: Report from Study
  Country: DE (occurrence: DE)
  Receive Date: 20130614
  Receipt Date: 20140211
  Transmission Date: 20141002
  Serious: Yes (Death, Life-Threatening)
  Sender: FDA-Public Use
  Company Number: DE-PFIZER INC-2013177425

PATIENT
  Age: 72 Year
  Sex: Female
  Weight: 68 kg

DRUGS (22)
  1. GEMTUZUMAB OZOGAMICIN [Suspect]
     Indication: ACUTE MYELOID LEUKAEMIA
     Dosage: 5.2 MG, UNK
     Route: 042
     Dates: start: 20130607, end: 20130607
  2. IDARUBICIN [Suspect]
     Indication: ACUTE MYELOID LEUKAEMIA
     Dosage: 21 MG, 1X/DAY
     Route: 042
     Dates: start: 20130607, end: 20130609
  3. CYTARABINE [Suspect]
     Indication: ACUTE MYELOID LEUKAEMIA
     Dosage: 175 MG, 1X/DAY
     Route: 042
     Dates: start: 20130607
  4. ETOPOSIDE [Suspect]
     Indication: ACUTE MYELOID LEUKAEMIA
     Dosage: 175 MG, UNK
     Route: 042
     Dates: start: 20130607, end: 20130609
  5. DELIX [Concomitant]
     Indication: HYPERTENSION
     Dosage: 10 MG, 1X/DAY, IN THE MORNING
     Route: 048
     Dates: start: 20130607, end: 20130610
  6. THIAMAZOLE [Concomitant]
     Indication: HYPERTHYROIDISM
     Dosage: 10 MG, 1X/DAY, IN THE MORNING
     Route: 048
     Dates: start: 20130507, end: 20130610
  7. JANUMET [Concomitant]
     Indication: DIABETES MELLITUS
     Dosage: 50 MG, 2X/DAY, IN THE MORNING AND AT NIGHT
     Route: 048
     Dates: start: 20130607, end: 20130610
  8. ZYLORIC [Concomitant]
     Indication: PROPHYLAXIS
     Dosage: 300 MG, 1X/DAY, AT NIGHT
     Route: 048
     Dates: start: 20130607, end: 20130623
  9. ZYLORIC [Concomitant]
     Indication: HYPERURICAEMIA
  10. CONCOR [Concomitant]
     Indication: HYPERTENSION
     Dosage: 5 MG, 2X/DAY, IN THE MORNING AND AT NIGHT
     Route: 048
     Dates: start: 20130607, end: 20130610
  11. FORTUM [Concomitant]
     Indication: PYREXIA
     Dosage: 2 G, 3X/DAY
     Route: 042
     Dates: start: 20130607, end: 20130607
  12. FORTUM [Concomitant]
     Indication: INFECTION
  13. MERONEM [Concomitant]
     Indication: PYREXIA
     Dosage: 1 G, 3X/DAY
     Route: 042
     Dates: start: 20130608, end: 20130623
  14. MERONEM [Concomitant]
     Indication: INFECTION
  15. FENISTIL [Concomitant]
     Indication: PROPHYLAXIS
     Dosage: 1 DF, 1X
     Route: 042
     Dates: start: 20130607, end: 20130607
  16. RANITIC [Concomitant]
     Indication: PROPHYLAXIS
     Dosage: 1 DF, 1X
     Route: 042
     Dates: start: 20130607, end: 20130607
  17. DEXAMETHASONE [Concomitant]
     Indication: PROPHYLACTIC CHEMOTHERAPY
     Dosage: 8 MG, 1X
     Route: 042
     Dates: start: 20130607, end: 20130610
  18. KEVATRIL [Concomitant]
     Indication: PROPHYLACTIC CHEMOTHERAPY
     Dosage: 1 MG, 1X
     Route: 048
     Dates: start: 20130607, end: 20130610
  19. LASIX [Concomitant]
     Indication: POLYURIA
     Dosage: 40 MG, AS NEEDED
     Route: 042
     Dates: start: 20130609, end: 20130610
  20. ACTRAPID [Concomitant]
     Indication: DIABETES MELLITUS
     Dosage: AS NEEDED
     Route: 058
     Dates: start: 20130607, end: 20130623
  21. SAROTEN [Concomitant]
     Indication: SEDATION
     Dosage: 25 MG, 1X/DAY, AT NIGHT
     Route: 048
     Dates: start: 20130608, end: 20130609
  22. PANTOZOL [Concomitant]
     Indication: PROPHYLAXIS AGAINST GASTROINTESTINAL ULCER
     Dosage: 20 MG, 1X/DAY, IN THE MORNING
     Route: 048
     Dates: start: 20130607, end: 20130610

REACTIONS (2)
  - Sepsis [Fatal]
  - Pneumonia [Fatal]
